FAERS Safety Report 17595928 (Version 1)
Quarter: 2020Q1

REPORT INFORMATION
  Report Type: Spontaneous
  Country: CN (occurrence: CN)
  Receive Date: 20200329
  Receipt Date: 20200329
  Transmission Date: 20200409
  Serious: Yes (Hospitalization)
  Sender: FDA-Public Use
  Company Number: CN-BAXTER-2020BAX006597

PATIENT
  Age: 9 Year
  Sex: Male

DRUGS (8)
  1. HOLOXAN [Suspect]
     Active Substance: IFOSFAMIDE
     Indication: MEDULLOBLASTOMA
     Dosage: FROM FIRST TO FIFTH CYCLES ADJUVANT CHEMOTHERAPY, IFOSFAMIDE + 5% GS
     Route: 041
  2. 5% GLUCOSE  INJECTION [Suspect]
     Active Substance: DEXTROSE
     Dosage: FOR SIXTH CYCLES ADJUVANT CHEMOTHERAPY, IFOSFAMIDE 1.4 GRAM + 5% GS 500 ML
     Route: 041
     Dates: start: 20191206, end: 20191208
  3. HOLOXAN [Suspect]
     Active Substance: IFOSFAMIDE
     Dosage: FOR SIXTH CYCLE ADJUVANT CHEMOTHERAPY, IFOSFAMIDE 1.4 GRAM + 5% GS 500 ML
     Route: 041
     Dates: start: 20191206, end: 20191208
  4. ETOPOSIDE. [Suspect]
     Active Substance: ETOPOSIDE
     Indication: MEDULLOBLASTOMA
     Dosage: FROM FIRST TO FIFTH CYCLES ADJUVANT CHEMOTHERAPY, ETOPOSIDE + NS
     Route: 041
  5. 0.9% SODIUM CHLORIDE INJECTION [Suspect]
     Active Substance: SODIUM CHLORIDE
     Indication: MEDICATION DILUTION
     Dosage: FROM FIRST TO FIFTH CYCLES ADJUVANT CHEMOTHERAPY, ETOPOSIDE + NS
     Route: 041
  6. 0.9% SODIUM CHLORIDE INJECTION [Suspect]
     Active Substance: SODIUM CHLORIDE
     Dosage: FOR SIXTH CYCLE ADJUVANT CHEMOTHERAPY, ETOPOSIDE 0.09 GRAM + NS 500 ML
     Route: 041
     Dates: start: 20191206, end: 20191206
  7. 5% GLUCOSE  INJECTION [Suspect]
     Active Substance: DEXTROSE
     Indication: MEDICATION DILUTION
     Dosage: FROM FIRST TO FIFTH CYCLES ADJUVANT CHEMOTHERAPY, IFOSFAMIDE + 5% GS
     Route: 041
  8. ETOPOSIDE. [Suspect]
     Active Substance: ETOPOSIDE
     Dosage: FOR SIXTH CYCLE ADJUVANT CHEMOTHERAPY, ETOPOSIDE 0.09 GRAM + NS 500 ML
     Route: 041
     Dates: start: 20191206, end: 20191206

REACTIONS (1)
  - Bone marrow failure [Recovering/Resolving]

NARRATIVE: CASE EVENT DATE: 20191211
